FAERS Safety Report 14814782 (Version 1)
Quarter: 2018Q2

REPORT INFORMATION
  Report Type: Spontaneous
  Country: US (occurrence: US)
  Receive Date: 20180417
  Receipt Date: 20180417
  Transmission Date: 20180711
  Serious: Yes (Other)
  Sender: FDA-Public Use
  Company Number: None

PATIENT
  Age: 50 Year
  Sex: Female
  Weight: 72.57 kg

DRUGS (2)
  1. SYNTHROID [Concomitant]
     Active Substance: LEVOTHYROXINE SODIUM
  2. KENALOG-40 [Suspect]
     Active Substance: TRIAMCINOLONE ACETONIDE
     Indication: PAIN
     Dosage: ?          OTHER ROUTE:INJECTION?
     Dates: start: 20170706

REACTIONS (6)
  - Nerve injury [None]
  - Scar [None]
  - Skin degenerative disorder [None]
  - Muscle atrophy [None]
  - Skin indentation [None]
  - Skin discolouration [None]

NARRATIVE: CASE EVENT DATE: 20170706
